FAERS Safety Report 6315703-1 (Version None)
Quarter: 2009Q3

REPORT INFORMATION
  Report Type: 
  Country: None (occurrence: None)
  Receive Date: 20090818
  Receipt Date: 20090803
  Transmission Date: 20100115
  Serious: Yes (Hospitalization, Other)
  Sender: FDA-Public Use
  Company Number: AUR-APL-2009-00335

PATIENT
  Age: 49 Year
  Sex: Female
  Weight: 68.04 kg

DRUGS (5)
  1. HYDROCHLOROTHIAZIDE [Suspect]
     Indication: HYPERTENSION
  2. ACCUPRIL [Suspect]
     Indication: HYPERTENSION
     Dosage: 10-40MG -DAILY
     Dates: start: 20040101
  3. ACCURETIC [Suspect]
     Indication: HYPERTENSION
     Dosage: 20MG/12.5MG -DAILY
  4. NORVASC [Suspect]
     Indication: HYPERTENSION
     Dosage: 10MG-DAILY
     Dates: start: 20040101
  5. ZOLOFT [Concomitant]

REACTIONS (4)
  - ANXIETY [None]
  - BACK PAIN [None]
  - BLOOD PRESSURE INADEQUATELY CONTROLLED [None]
  - PANIC ATTACK [None]
